FAERS Safety Report 18795323 (Version 4)
Quarter: 2021Q3

REPORT INFORMATION
  Report Type: Report from Study
  Country: CA (occurrence: CA)
  Receive Date: 20210127
  Receipt Date: 20210818
  Transmission Date: 20211014
  Serious: Yes (Other)
  Sender: FDA-Public Use
  Company Number: CA-OTSUKA-2021_001826

PATIENT
  Sex: Female

DRUGS (1)
  1. CEDAZURIDINE AND DECITABINE [Suspect]
     Active Substance: CEDAZURIDINE\DECITABINE
     Indication: MYELODYSPLASTIC SYNDROME
     Dosage: (35 MG DECITABINE AND 100 MG CEDAZURIDINE)
     Route: 065
     Dates: start: 20201130

REACTIONS (7)
  - Platelet transfusion [Unknown]
  - White blood cell count decreased [Unknown]
  - COVID-19 [Unknown]
  - Therapy interrupted [Unknown]
  - General physical health deterioration [Unknown]
  - Packed red blood cell transfusion [Unknown]
  - Eastern Cooperative Oncology Group performance status worsened [Unknown]
